FAERS Safety Report 4410577-8 (Version None)
Quarter: 2004Q3

REPORT INFORMATION
  Report Type: 
  Country: None (occurrence: None)
  Receive Date: 20040726
  Receipt Date: 20040713
  Transmission Date: 20050211
  Serious: Yes (Hospitalization)
  Sender: FDA-Public Use
  Company Number: US-JNJFOC-20040703551

PATIENT
  Age: 47 Year
  Sex: Female
  Weight: 38.5557 kg

DRUGS (8)
  1. DURAGESIC [Suspect]
     Indication: PAIN
     Dosage: 50 UG/HR, 1 IN 72 HOUR, TRANSDERMAL
     Route: 062
     Dates: start: 19990101
  2. METHADONE (METHADONE) TABLETS [Concomitant]
  3. PHENOBARBITAL (PHENOBARBITAL) TABLETS [Concomitant]
  4. TRAZADONE (TRAZODONE) TABLETS [Concomitant]
  5. PERCOCET (OXYCOCET) TABLETS [Concomitant]
  6. HYDROCODONE (HYDROCODONE) TABLETS [Concomitant]
  7. TEGRETOL [Concomitant]
  8. PAROXETINE (PAROXETINE) TABLETS [Concomitant]

REACTIONS (13)
  - ABDOMINAL DISTENSION [None]
  - ABDOMINAL PAIN [None]
  - ANOREXIA [None]
  - CHEST PAIN [None]
  - CONFUSIONAL STATE [None]
  - DYSPNOEA [None]
  - FALL [None]
  - HIP SURGERY [None]
  - HYPERHIDROSIS [None]
  - PALPITATIONS [None]
  - UPPER LIMB FRACTURE [None]
  - VISUAL DISTURBANCE [None]
  - WEIGHT DECREASED [None]
